FAERS Safety Report 21853660 (Version 1)
Quarter: 2023Q1

REPORT INFORMATION
  Report Type: Spontaneous
  Country: US (occurrence: US)
  Receive Date: 20230112
  Receipt Date: 20230112
  Transmission Date: 20230418
  Serious: No
  Sender: FDA-Public Use
  Company Number: US-SA-SAC20230111000754

PATIENT

DRUGS (2)
  1. DUPIXENT [Suspect]
     Active Substance: DUPILUMAB
     Indication: Asthma
     Route: 065
  2. DUPIXENT [Suspect]
     Active Substance: DUPILUMAB
     Indication: Pulmonary eosinophilia

REACTIONS (1)
  - Product use in unapproved indication [Unknown]
